FAERS Safety Report 9941181 (Version 2)
Quarter: 2014Q1

REPORT INFORMATION
  Report Type: Report from Study
  Country: US (occurrence: US)
  Receive Date: 20140303
  Receipt Date: 20140303
  Transmission Date: 20141002
  Serious: No
  Sender: FDA-Public Use
  Company Number: US-ABBVIE-12P-163-0957396-00

PATIENT
  Age: 41 Year
  Sex: Female

DRUGS (4)
  1. HUMIRA [Suspect]
     Indication: CROHN^S DISEASE
     Route: 058
     Dates: start: 20120118, end: 20120118
  2. HUMIRA [Suspect]
     Route: 058
     Dates: start: 20120201, end: 20120201
  3. HUMIRA [Suspect]
     Route: 058
     Dates: start: 20120215, end: 20120901
  4. MULTIVITAMIN [Concomitant]
     Indication: SUPPLEMENTATION THERAPY

REACTIONS (4)
  - Psoriasis [Unknown]
  - Psoriasis [Recovered/Resolved]
  - Cellulitis [Recovered/Resolved]
  - Alopecia [Recovering/Resolving]
